FAERS Safety Report 8819214 (Version 1)
Quarter: 2012Q4

REPORT INFORMATION
  Report Type: 
  Country: US (occurrence: US)
  Receive Date: 20121001
  Receipt Date: 20121001
  Transmission Date: 20130627
  Serious: No
  Sender: FDA-Public Use
  Company Number: US-PFIZER INC-2012239572

PATIENT
  Age: 51 Year

DRUGS (2)
  1. ZOLOFT [Suspect]
     Dosage: 100 mg,UNK
  2. LISINOPRIL [Suspect]
     Dosage: UNK

REACTIONS (1)
  - Drug hypersensitivity [Unknown]
